FAERS Safety Report 5008288-3 (Version None)
Quarter: 2006Q2

REPORT INFORMATION
  Report Type: 
  Country: None (occurrence: None)
  Receive Date: 20060523
  Receipt Date: 20060511
  Transmission Date: 20061013
  Serious: Yes (Other)
  Sender: FDA-Public Use
  Company Number: ES-AMGEN-UK179344

PATIENT
  Age: 20 Year
  Sex: Male

DRUGS (4)
  1. NEULASTA [Suspect]
     Indication: AGRANULOCYTOSIS
     Route: 058
     Dates: start: 20050920, end: 20050920
  2. ETOPOSIDE [Concomitant]
     Route: 065
     Dates: start: 20050822, end: 20050920
  3. BLEOMYCIN [Concomitant]
     Route: 065
     Dates: start: 20050822, end: 20050920
  4. CISPLATIN [Concomitant]
     Route: 065
     Dates: start: 20050822, end: 20050920

REACTIONS (5)
  - CONJUNCTIVITIS [None]
  - COUGH [None]
  - DYSPNOEA [None]
  - HEADACHE [None]
  - SUFFOCATION FEELING [None]
